FAERS Safety Report 13010582 (Version 2)
Quarter: 2016Q4

REPORT INFORMATION
  Report Type: Spontaneous
  Country: US (occurrence: US)
  Receive Date: 20161208
  Receipt Date: 20161216
  Transmission Date: 20170207
  Serious: Yes (Life-Threatening)
  Sender: FDA-Public Use
  Company Number: US-GLAXOSMITHKLINE-US2016181953

PATIENT
  Sex: Male

DRUGS (6)
  1. GLIMEPIRIDE. [Concomitant]
     Active Substance: GLIMEPIRIDE
  2. VENTOLIN HFA [Suspect]
     Active Substance: ALBUTEROL SULFATE
     Indication: ASTHMA
     Dosage: 2 PUFF(S), PRN
     Route: 055
     Dates: start: 20150401
  3. METFORMIN [Concomitant]
     Active Substance: METFORMIN HYDROCHLORIDE
  4. HYDROCHLOROTHIAZIDE + VALSARTAN [Concomitant]
  5. DIOVAN [Concomitant]
     Active Substance: VALSARTAN
  6. TANZEUM [Concomitant]
     Active Substance: ALBIGLUTIDE

REACTIONS (4)
  - Panic attack [Unknown]
  - Dyspnoea [Unknown]
  - Product cleaning inadequate [Unknown]
  - Device use error [Unknown]
